FAERS Safety Report 17529111 (Version 1)
Quarter: 2020Q1

REPORT INFORMATION
  Report Type: Spontaneous
  Country: US (occurrence: US)
  Receive Date: 20200311
  Receipt Date: 20200311
  Transmission Date: 20200409
  Serious: No
  Sender: FDA-Public Use
  Company Number: US-ROCHE-2527552

PATIENT
  Sex: Female
  Weight: 51.76 kg

DRUGS (6)
  1. BENZONATATE. [Concomitant]
     Active Substance: BENZONATATE
     Route: 048
     Dates: start: 20190705, end: 20190716
  2. MEGACE ES [Concomitant]
     Active Substance: MEGESTROL ACETATE
     Route: 048
     Dates: start: 20190705, end: 20190716
  3. MEGESTROL [Concomitant]
     Active Substance: MEGESTROL
     Route: 048
     Dates: start: 20190726
  4. XALKORI [Concomitant]
     Active Substance: CRIZOTINIB
     Route: 048
     Dates: start: 20190726
  5. LIDOCAINE VISCOUS [Concomitant]
     Active Substance: LIDOCAINE HYDROCHLORIDE
     Route: 048
     Dates: start: 20190826
  6. ENTRECTINIB [Suspect]
     Active Substance: ENTRECTINIB
     Indication: NEOPLASM MALIGNANT
     Route: 048
     Dates: start: 20191219

REACTIONS (7)
  - Abdominal pain upper [Unknown]
  - Hypoaesthesia oral [Unknown]
  - Myalgia [Unknown]
  - Fatigue [Unknown]
  - Blood creatine phosphokinase increased [Unknown]
  - Ageusia [Unknown]
  - Dyspnoea [Unknown]
